FAERS Safety Report 12690974 (Version 5)
Quarter: 2022Q1

REPORT INFORMATION
  Report Type: Report from Study
  Country: TR (occurrence: TR)
  Receive Date: 20160826
  Receipt Date: 20220131
  Transmission Date: 20220423
  Serious: Yes (Death, Other)
  Sender: FDA-Public Use
  Company Number: TR-ALEXION PHARMACEUTICALS INC-A201606271

PATIENT
  Age: 0 Year
  Sex: Female
  Weight: 2.8 kg

DRUGS (2)
  1. ASFOTASE ALFA [Suspect]
     Active Substance: ASFOTASE ALFA
     Dosage: 3 MG/KG, TIW
     Route: 058
     Dates: start: 20160810
  2. ASFOTASE ALFA [Suspect]
     Active Substance: ASFOTASE ALFA
     Indication: Hypophosphatasia
     Dosage: 2 MG/KG, TIW
     Route: 058

REACTIONS (2)
  - Respiratory failure [Fatal]
  - Hypotonia [Unknown]

NARRATIVE: CASE EVENT DATE: 20160820
